FAERS Safety Report 6192757-7 (Version None)
Quarter: 2009Q2

REPORT INFORMATION
  Report Type: 
  Country: None (occurrence: None)
  Receive Date: 20090518
  Receipt Date: 20090511
  Transmission Date: 20091009
  Serious: Yes (Hospitalization)
  Sender: FDA-Public Use
  Company Number: US-TEVA-194621USA

PATIENT
  Sex: Female

DRUGS (13)
  1. PERPHENAZINE TABLETS USP, 8MG [Suspect]
     Route: 048
  2. ACETYLSALICYLIC ACID [Suspect]
     Route: 048
  3. INDOMETHACIN [Suspect]
     Route: 048
  4. NAPROXEN [Suspect]
     Route: 048
  5. AMITRIPTYLINE HYDROCHLORIDE [Suspect]
     Route: 048
  6. BUSPIRONE HCL [Suspect]
     Route: 048
  7. MIRTAZAPINE [Suspect]
     Route: 048
  8. LIBRAX [Suspect]
     Route: 048
  9. OMEPRAZOLE [Suspect]
     Route: 048
  10. SUCRALFATE [Suspect]
     Route: 048
  11. TOLTERODINE TARTRATE [Suspect]
     Route: 048
  12. NIFEDIPINE [Suspect]
     Route: 048
  13. LINEZOLID [Suspect]
     Indication: URINARY TRACT INFECTION

REACTIONS (4)
  - DELIRIUM [None]
  - DRUG INTERACTION [None]
  - RENAL FAILURE ACUTE [None]
  - URINARY RETENTION [None]
